FAERS Safety Report 7989061-0 (Version None)
Quarter: 2011Q4

REPORT INFORMATION
  Report Type: 
  Country: None (occurrence: None)
  Receive Date: 20111219
  Receipt Date: 20111207
  Transmission Date: 20120403
  Serious: Yes (Hospitalization)
  Sender: FDA-Public Use
  Company Number: US-BAYER-201033114NA

PATIENT
  Age: 19 Year
  Sex: Female
  Weight: 67.12 kg

DRUGS (9)
  1. MELOXICAM [Concomitant]
  2. LORTAB [Concomitant]
  3. NABUMETONE [Concomitant]
  4. YASMIN [Suspect]
     Dosage: UNK UNK, QD
     Route: 048
     Dates: start: 20060101, end: 20080101
  5. AVELOX [Concomitant]
  6. SINGULAIR [Concomitant]
  7. PREDNISONE [Concomitant]
  8. YAZ [Suspect]
     Indication: CONTRACEPTION
     Dosage: UNK
     Route: 048
     Dates: start: 20060101, end: 20080101
  9. XOPENEX [Concomitant]

REACTIONS (6)
  - ABDOMINAL PAIN [None]
  - CHOLECYSTECTOMY [None]
  - CHOLECYSTITIS CHRONIC [None]
  - PANCREATITIS [None]
  - ABDOMINAL DISCOMFORT [None]
  - CHOLELITHIASIS [None]
